FAERS Safety Report 8649071 (Version 2)
Quarter: 2020Q4

REPORT INFORMATION
  Report Type: Spontaneous
  Country: NL (occurrence: NL)
  Receive Date: 20120704
  Receipt Date: 20201028
  Transmission Date: 20210114
  Serious: Yes (Hospitalization)
  Sender: FDA-Public Use
  Company Number: PHHY2012NL055883

PATIENT
  Age: 62 Year
  Sex: Female

DRUGS (10)
  1. VORICONAZOLE. [Interacting]
     Active Substance: VORICONAZOLE
     Dosage: 200 MG, BID
     Route: 048
  2. VORICONAZOLE. [Interacting]
     Active Substance: VORICONAZOLE
     Dosage: 800 MG, QD 400 MILLIGRAM, TWO TIMES A DAY (LOADING DOSE FOR 1 DAY)
     Route: 048
  3. VORICONAZOLE. [Interacting]
     Active Substance: VORICONAZOLE
     Dosage: 510 MG, BID (510 MILLIGRAM (LOADING DOSE OF 6 MG/KG))
     Route: 042
  4. CASPOFUNGIN [Concomitant]
     Active Substance: CASPOFUNGIN
     Indication: PRODUCT USED FOR UNKNOWN INDICATION
     Dosage: UNK
     Route: 065
  5. VORICONAZOLE. [Interacting]
     Active Substance: VORICONAZOLE
     Dosage: 10 MG/KG, QD 5 MILLIGRAM/KILOGRAM, TWO TIMES A DAY (MAINTENANCE DOSE 425 MG)
     Route: 042
  6. VORICONAZOLE. [Interacting]
     Active Substance: VORICONAZOLE
     Indication: FUNGAL INFECTION
     Dosage: 400 MG, QD (200 MILLIGRAM, TWO TIMES A DAY (MAINTENANCE DOSE))
     Route: 048
  7. VORICONAZOLE. [Interacting]
     Active Substance: VORICONAZOLE
     Dosage: 425 MG, BID
     Route: 042
  8. VORICONAZOLE. [Interacting]
     Active Substance: VORICONAZOLE
     Dosage: 5 MILLIGRAM/KILOGRAM, TWO TIMES A DAY (MAINTENANCE DOSE (425MG)
     Route: 042
  9. CARBAMAZEPINE. [Suspect]
     Active Substance: CARBAMAZEPINE
     Indication: BIPOLAR DISORDER
     Dosage: 400 MG, QD 200 MILLIGRAM, TWO TIMES A DAY
     Route: 048
     Dates: start: 2005
  10. AMBISOME [Concomitant]
     Active Substance: AMPHOTERICIN B
     Indication: FUNGAL INFECTION
     Dosage: UNK
     Route: 065

REACTIONS (3)
  - Drug level below therapeutic [Recovering/Resolving]
  - Drug interaction [Recovering/Resolving]
  - Drug level decreased [Recovered/Resolved]
